FAERS Safety Report 13268420 (Version 3)
Quarter: 2017Q2

REPORT INFORMATION
  Report Type: Report from Study
  Country: CA (occurrence: CA)
  Receive Date: 20170224
  Receipt Date: 20170627
  Transmission Date: 20170830
  Serious: Yes (Hospitalization)
  Sender: FDA-Public Use
  Company Number: CA-JNJFOC-20170222985

PATIENT
  Age: 75 Year
  Sex: Female
  Weight: 67.2 kg

DRUGS (1)
  1. SIMPONI [Suspect]
     Active Substance: GOLIMUMAB
     Indication: PSORIATIC ARTHROPATHY
     Route: 058
     Dates: start: 20160403

REACTIONS (1)
  - Breast abscess [Unknown]

NARRATIVE: CASE EVENT DATE: 20170131
